FAERS Safety Report 4838124-7 (Version None)
Quarter: 2005Q4

REPORT INFORMATION
  Report Type: 
  Country: None (occurrence: None)
  Receive Date: 20051128
  Receipt Date: 20051117
  Transmission Date: 20060501
  Serious: No
  Sender: FDA-Public Use
  Company Number: 2005PK02157

PATIENT
  Age: 43 Year
  Sex: Female

DRUGS (18)
  1. SEROQUEL [Suspect]
     Route: 048
     Dates: start: 20040310
  2. SEROQUEL [Interacting]
     Route: 048
     Dates: start: 20040312, end: 20040315
  3. SEROQUEL [Interacting]
     Route: 048
     Dates: start: 20040316, end: 20040317
  4. SEROQUEL [Interacting]
     Route: 048
     Dates: start: 20040318, end: 20040321
  5. SEROQUEL [Interacting]
     Route: 048
     Dates: start: 20040322
  6. SEROQUEL [Interacting]
     Route: 048
     Dates: start: 20040322
  7. SEROQUEL [Interacting]
     Route: 048
     Dates: start: 20040324
  8. SEROQUEL [Interacting]
     Route: 048
     Dates: start: 20040325
  9. HALDOL [Interacting]
     Route: 048
     Dates: start: 20040127
  10. HALDOL DECANOAT [Interacting]
     Route: 030
     Dates: start: 20040322
  11. AKINETON [Concomitant]
     Dates: start: 20040304
  12. TAVOR [Concomitant]
     Dates: start: 20040304, end: 20040309
  13. TAVOR [Concomitant]
     Dates: start: 20040310, end: 20040311
  14. TAVOR [Concomitant]
     Dates: start: 20040312, end: 20040315
  15. TAVOR [Concomitant]
     Dates: start: 20040316
  16. TAVOR [Concomitant]
     Dates: start: 20040317
  17. TAVOR [Concomitant]
     Dates: start: 20040318
  18. LEPONEX [Concomitant]
     Dates: end: 20040304

REACTIONS (2)
  - DRUG INTERACTION [None]
  - LEUKOPENIA [None]
